FAERS Safety Report 13507960 (Version 1)
Quarter: 2017Q2

REPORT INFORMATION
  Report Type: Spontaneous
  Country: US (occurrence: US)
  Receive Date: 20170503
  Receipt Date: 20170503
  Transmission Date: 20170830
  Serious: Yes (Other)
  Sender: FDA-Public Use
  Company Number: US-PFIZER INC-2017189815

PATIENT
  Age: 41 Year
  Sex: Female

DRUGS (6)
  1. EPIPEN [Suspect]
     Active Substance: EPINEPHRINE
     Dosage: UNK
     Dates: start: 201701, end: 201701
  2. EPIPEN [Suspect]
     Active Substance: EPINEPHRINE
     Indication: MASTOCYTOSIS
     Dosage: UNK
     Dates: start: 201612, end: 201612
  3. AZITHROMYCIN ANHYDROUS. [Concomitant]
     Active Substance: AZITHROMYCIN ANHYDROUS
     Dosage: UNK, QD
  4. DOXYCLINE /00055701/ [Concomitant]
     Active Substance: DOXYCYCLINE
     Dosage: 200 MG, BID
  5. PLAQUENIL /00072602/ [Concomitant]
     Active Substance: HYDROXYCHLOROQUINE DIPHOSPHATE
     Dosage: UNK, QD
  6. HEPARIN [Concomitant]
     Active Substance: HEPARIN SODIUM
     Dosage: UNK

REACTIONS (1)
  - Drug ineffective [Recovered/Resolved]
